FAERS Safety Report 6664436-0 (Version None)
Quarter: 2010Q2

REPORT INFORMATION
  Report Type: 
  Country: None (occurrence: None)
  Receive Date: 20100401
  Receipt Date: 20100330
  Transmission Date: 20101027
  Serious: Yes (Life-Threatening, Hospitalization, Other)
  Sender: FDA-Public Use
  Company Number: PHEH2010US03376

PATIENT
  Sex: Female

DRUGS (5)
  1. RECLAST [Suspect]
     Dosage: UNK
     Dates: start: 20100223
  2. ARIMIDEX [Concomitant]
  3. CATAFLAM [Concomitant]
  4. BENICAR [Concomitant]
  5. GLUCOTROL [Concomitant]

REACTIONS (5)
  - ABASIA [None]
  - FEELING ABNORMAL [None]
  - HYPOTENSION [None]
  - PAIN [None]
  - RENAL FAILURE [None]
